FAERS Safety Report 19603383 (Version 1)
Quarter: 2021Q3

REPORT INFORMATION
  Report Type: Spontaneous
  Country: PK (occurrence: PK)
  Receive Date: 20210723
  Receipt Date: 20210723
  Transmission Date: 20211014
  Serious: Yes (Death, Life-Threatening, Other)
  Sender: FDA-Public Use
  Company Number: PK-SUN PHARMACEUTICAL INDUSTRIES LTD-2021R1-300538

PATIENT
  Age: 34 Year
  Sex: Male

DRUGS (9)
  1. ETHIONAMIDE [Suspect]
     Active Substance: ETHIONAMIDE
     Indication: PRODUCT USED FOR UNKNOWN INDICATION
     Dosage: UNK
     Route: 065
  2. AZATHIOPRINE. [Interacting]
     Active Substance: AZATHIOPRINE
     Indication: TUBERCULOSIS
     Dosage: UNK
     Route: 065
  3. CLOFAZIMINE [Suspect]
     Active Substance: CLOFAZIMINE
     Indication: TUBERCULOSIS
     Dosage: UNK
     Route: 065
  4. LINEZOLIDE [Interacting]
     Active Substance: LINEZOLID
     Indication: TUBERCULOSIS
     Dosage: UNK
     Route: 065
  5. BEDAQUILINE [Suspect]
     Active Substance: BEDAQUILINE
     Indication: TUBERCULOSIS
     Dosage: UNK
     Route: 065
  6. DELAMANID [Suspect]
     Active Substance: DELAMANID
     Indication: TUBERCULOSIS
     Dosage: UNK
     Route: 065
  7. MOXIFLOXACIN. [Suspect]
     Active Substance: MOXIFLOXACIN
     Indication: PRODUCT USED FOR UNKNOWN INDICATION
     Dosage: UNK
     Route: 065
  8. PREDNISONE. [Suspect]
     Active Substance: PREDNISONE
     Indication: PRODUCT USED FOR UNKNOWN INDICATION
     Dosage: UNK
     Route: 065
  9. CYCLOSPORINE. [Suspect]
     Active Substance: CYCLOSPORINE
     Indication: PRODUCT USED FOR UNKNOWN INDICATION
     Dosage: UNK
     Route: 065

REACTIONS (5)
  - Toxicity to various agents [Fatal]
  - Thrombocytopenia [Unknown]
  - Epilepsy [Fatal]
  - Drug interaction [Fatal]
  - Abdominal pain [Fatal]
